FAERS Safety Report 20371396 (Version 1)
Quarter: 2022Q1

REPORT INFORMATION
  Report Type: Spontaneous
  Country: US (occurrence: None)
  Receive Date: 20220124
  Receipt Date: 20220124
  Transmission Date: 20220424
  Serious: No
  Sender: FDA-Public Use
  Company Number: None

PATIENT
  Sex: Male

DRUGS (1)
  1. SIMPONI [Suspect]
     Active Substance: GOLIMUMAB
     Indication: Rheumatoid arthritis
     Dosage: 50MG ONCE EVERY 28 DAYS UNDER THE SKIN?
     Route: 058
     Dates: start: 202010

REACTIONS (3)
  - Joint swelling [None]
  - Condition aggravated [None]
  - Arthralgia [None]
